FAERS Safety Report 6555935-0 (Version None)
Quarter: 2010Q1

REPORT INFORMATION
  Report Type: 
  Country: None (occurrence: None)
  Receive Date: 20100128
  Receipt Date: 20100121
  Transmission Date: 20100710
  Serious: Yes (Death, Life-Threatening, Other)
  Sender: FDA-Public Use
  Company Number: JP-PFIZER INC-2009285018

PATIENT
  Age: 80 Year
  Sex: Male
  Weight: 54.8 kg

DRUGS (7)
  1. SOLU-CORTEF [Suspect]
     Indication: PNEUMONIA
     Dosage: 250 MG, 1X/DAY
     Route: 042
     Dates: start: 20070323
  2. CEFTRIAXONE [Concomitant]
     Dosage: UNK
     Route: 042
     Dates: start: 20070323, end: 20070326
  3. MINOCYCLINE HCL [Concomitant]
     Dosage: UNK
     Route: 042
     Dates: start: 20070323, end: 20070326
  4. CEFEPIME [Concomitant]
     Dosage: UNK
     Dates: end: 20070424
  5. CLINDAMYCIN HYDROCHLORIDE [Concomitant]
     Dosage: UNK
     Dates: end: 20070424
  6. VANCOMYCIN [Concomitant]
     Dosage: UNK
     Dates: end: 20070424
  7. VORICONAZOLE [Concomitant]
     Dosage: UNK
     Dates: end: 20070424

REACTIONS (4)
  - BRONCHOPULMONARY ASPERGILLOSIS [None]
  - GASTROINTESTINAL NECROSIS [None]
  - LARGE INTESTINAL HAEMORRHAGE [None]
  - LARGE INTESTINE PERFORATION [None]
